FAERS Safety Report 11189691 (Version 2)
Quarter: 2015Q4

REPORT INFORMATION
  Report Type: Spontaneous
  Country: US (occurrence: US)
  Receive Date: 20150615
  Receipt Date: 20151116
  Transmission Date: 20160304
  Serious: Yes (Hospitalization, Other)
  Sender: FDA-Public Use
  Company Number: US-DSJP-DSU-2015-100986

PATIENT

DRUGS (4)
  1. BENICAR [Suspect]
     Active Substance: OLMESARTAN MEDOXOMIL
     Indication: HYPERTENSION
     Dosage: 40 MG, UNK
     Dates: start: 2004, end: 20081022
  2. METOPROLOL TARTRATE. [Concomitant]
     Active Substance: METOPROLOL TARTRATE
     Indication: PRODUCT USED FOR UNKNOWN INDICATION
     Dosage: 50 MG, BID
     Dates: start: 2002, end: 2009
  3. LISINOPRIL. [Concomitant]
     Active Substance: LISINOPRIL
     Indication: PRODUCT USED FOR UNKNOWN INDICATION
     Dosage: 40 MG, UNK
     Dates: start: 2008, end: 2009
  4. HYDROCHLOROTHIAZIDE. [Concomitant]
     Active Substance: HYDROCHLOROTHIAZIDE
     Indication: PRODUCT USED FOR UNKNOWN INDICATION
     Dosage: 25 MG, QD
     Dates: start: 2002, end: 2006

REACTIONS (14)
  - Acute kidney injury [Unknown]
  - Lactose intolerance [Unknown]
  - Chronic kidney disease [Unknown]
  - Hypotension [Unknown]
  - Pancytopenia [Unknown]
  - Gallbladder polyp [Unknown]
  - Metabolic acidosis [Unknown]
  - Coeliac disease [Unknown]
  - Large intestine polyp [Unknown]
  - Nervousness [Unknown]
  - Malabsorption [Unknown]
  - Autoimmune disorder [Unknown]
  - Enterocolitis infectious [Unknown]
  - Pancreatitis chronic [Unknown]

NARRATIVE: CASE EVENT DATE: 20050827
